FAERS Safety Report 8535420-7 (Version None)
Quarter: 2012Q3

REPORT INFORMATION
  Report Type: 
  Country: None (occurrence: None)
  Receive Date: 20120725
  Receipt Date: 20120717
  Transmission Date: 20120928
  Serious: Yes (Hospitalization, Disabling, Other)
  Sender: FDA-Public Use
  Company Number: US-009507513-2012SP005879

PATIENT

DRUGS (2)
  1. [COMPOSITION UNSPECIFIED] [Suspect]
     Indication: WEIGHT DECREASED
  2. NUVARING [Suspect]
     Indication: CONTRACEPTION
     Dates: start: 20090101, end: 20100201

REACTIONS (12)
  - EMOTIONAL DISORDER [None]
  - ANAEMIA [None]
  - THROMBOCYTOSIS [None]
  - CAROTID ARTERY STENOSIS [None]
  - CAROTID ARTERY THROMBOSIS [None]
  - COGNITIVE DISORDER [None]
  - HYPOKALAEMIA [None]
  - CEREBROVASCULAR ACCIDENT [None]
  - SLEEP DISORDER [None]
  - ENCEPHALOMALACIA [None]
  - MENTAL DISORDER [None]
  - CONVULSION [None]
